FAERS Safety Report 17520257 (Version 1)
Quarter: 2020Q1

REPORT INFORMATION
  Report Type: Spontaneous
  Country: US (occurrence: US)
  Receive Date: 20200309
  Receipt Date: 20200309
  Transmission Date: 20200409
  Serious: No
  Sender: FDA-Public Use
  Company Number: US-009507513-2002USA009028

PATIENT
  Age: 20 Year
  Sex: Female
  Weight: 59.86 kg

DRUGS (2)
  1. NEXPLANON [Suspect]
     Active Substance: ETONOGESTREL
     Indication: CONTRACEPTION
     Dosage: 1 IMPLANT EVERY 3 YEARS IN THE LEFT ARM
     Route: 059
     Dates: start: 20200102, end: 20200102
  2. NEXPLANON [Suspect]
     Active Substance: ETONOGESTREL
     Dosage: 1 IMPLANT EVERY 3 YEARS IN THE RIGHT ARM
     Dates: start: 20200106

REACTIONS (5)
  - Complication of device insertion [Recovered/Resolved]
  - Weight decreased [Unknown]
  - Nerve injury [Recovered/Resolved]
  - Ulnar nerve injury [Recovered/Resolved]
  - Device difficult to use [Recovered/Resolved]

NARRATIVE: CASE EVENT DATE: 20200102
